FAERS Safety Report 22962753 (Version 9)
Quarter: 2024Q1

REPORT INFORMATION
  Report Type: Spontaneous
  Country: US (occurrence: US)
  Receive Date: 20230920
  Receipt Date: 20240319
  Transmission Date: 20240409
  Serious: Yes (Other)
  Sender: FDA-Public Use
  Company Number: US-PFIZER INC-202300302286

PATIENT
  Age: 65 Year
  Sex: Male
  Weight: 86.18 kg

DRUGS (9)
  1. PAXLOVID [Suspect]
     Active Substance: NIRMATRELVIR\RITONAVIR
     Indication: Post-acute COVID-19 syndrome
     Dosage: 2 DF, 1X/DAY
     Route: 048
     Dates: start: 202308
  2. PAXLOVID [Suspect]
     Active Substance: NIRMATRELVIR\RITONAVIR
     Dosage: UNK
     Dates: start: 202312
  3. LEXIVA [Concomitant]
     Active Substance: FOSAMPRENAVIR CALCIUM
     Dosage: UNK
  4. ALPRAZOLAM [Concomitant]
     Active Substance: ALPRAZOLAM
     Dosage: UNK
  5. XANAX [Concomitant]
     Active Substance: ALPRAZOLAM
     Indication: Anxiety
     Dosage: UNK
  6. XANAX [Concomitant]
     Active Substance: ALPRAZOLAM
     Indication: Cerebral disorder
  7. RITONAVIR [Concomitant]
     Active Substance: RITONAVIR
     Indication: Post-acute COVID-19 syndrome
     Dosage: UNK, DAILY
  8. TRUVADA [Concomitant]
     Active Substance: EMTRICITABINE\TENOFOVIR DISOPROXIL FUMARATE
     Dosage: UNK
  9. DESCOVY [Concomitant]
     Active Substance: EMTRICITABINE\TENOFOVIR ALAFENAMIDE FUMARATE
     Dosage: UNK

REACTIONS (6)
  - Drug dependence [Unknown]
  - Off label use [Unknown]
  - Drug effective for unapproved indication [Unknown]
  - Therapeutic response unexpected [Unknown]
  - Incorrect product administration duration [Unknown]
  - Intentional product misuse [Unknown]

NARRATIVE: CASE EVENT DATE: 20230801
